FAERS Safety Report 17685305 (Version 1)
Quarter: 2020Q2

REPORT INFORMATION
  Report Type: Spontaneous
  Country: US (occurrence: US)
  Receive Date: 20200418
  Receipt Date: 20200418
  Transmission Date: 20200714
  Serious: Yes (Disabling, Other)
  Sender: FDA-Public Use
  Company Number: None

PATIENT
  Age: 56 Year
  Sex: Female
  Weight: 59.4 kg

DRUGS (11)
  1. VITAMINS [Concomitant]
     Active Substance: VITAMINS
  2. VITAMIN D [Concomitant]
     Active Substance: VITAMIN D NOS
  3. COQ 10 [Concomitant]
     Active Substance: UBIDECARENONE
  4. HERBS [Concomitant]
     Active Substance: HERBALS
  5. MILK THISTLE [Concomitant]
     Active Substance: DIETARY SUPPLEMENT\HERBALS\MILK THISTLE
  6. LEVOFLOXACIN. [Suspect]
     Active Substance: LEVOFLOXACIN
     Indication: BACTERIAL INFECTION
     Dosage: ?          QUANTITY:10 TABLET(S);?
     Route: 048
     Dates: start: 20200406, end: 20200415
  7. VITAMIN A [Concomitant]
     Active Substance: VITAMIN A
  8. VITAMIN B [Concomitant]
     Active Substance: VITAMIN B
  9. MULTIVITAMINS [Concomitant]
     Active Substance: VITAMINS
  10. VITAMIN C [Concomitant]
     Active Substance: ASCORBIC ACID
  11. VITAMIN B12 [Concomitant]
     Active Substance: CYANOCOBALAMIN

REACTIONS (6)
  - Neuralgia [None]
  - Heart rate increased [None]
  - Viral test negative [None]
  - Influenza like illness [None]
  - Coronavirus infection [None]
  - Pain in extremity [None]

NARRATIVE: CASE EVENT DATE: 20200406
